FAERS Safety Report 12720885 (Version 1)
Quarter: 2016Q3

REPORT INFORMATION
  Report Type: Other
  Country: US (occurrence: US)
  Receive Date: 20160907
  Receipt Date: 20160907
  Transmission Date: 20161109
  Serious: No
  Sender: FDA-Public Use
  Company Number: US-COL_21325_2015

PATIENT
  Age: 27 Year
  Sex: Female

DRUGS (2)
  1. COLGATE TOTAL ADVANCED WHITENING [Suspect]
     Active Substance: SODIUM FLUORIDE\TRICLOSAN
     Dosage: A PEA SIZE AMOUNT/TID/
     Route: 048
     Dates: start: 201511, end: 20151113
  2. COLGATE TOTAL ADVANCED WHITENING [Suspect]
     Active Substance: SODIUM FLUORIDE\TRICLOSAN
     Indication: PRODUCT USED FOR UNKNOWN INDICATION
     Dosage: A PEA SIZE AMOUNT/TID/
     Route: 048
     Dates: start: 20151103, end: 201511

REACTIONS (6)
  - Hypersensitivity [Recovering/Resolving]
  - Lip haemorrhage [Recovering/Resolving]
  - Chapped lips [Recovering/Resolving]
  - Tongue discolouration [Recovering/Resolving]
  - Lip dry [Recovering/Resolving]
  - Tongue exfoliation [Recovering/Resolving]

NARRATIVE: CASE EVENT DATE: 20151110
